FAERS Safety Report 7360975-8 (Version None)
Quarter: 2011Q1

REPORT INFORMATION
  Report Type: 
  Country: None (occurrence: None)
  Receive Date: 20110318
  Receipt Date: 20101221
  Transmission Date: 20110831
  Serious: No
  Sender: FDA-Public Use
  Company Number: US-BAYER-2011-010494

PATIENT
  Sex: Female
  Weight: 13 kg

DRUGS (1)
  1. ALEVE (CAPLET) [Suspect]
     Dosage: CHILD POSSIBLY ATE HALF TABLET
     Route: 048
     Dates: start: 20101221

REACTIONS (1)
  - NO ADVERSE EVENT [None]
